FAERS Safety Report 7721495-1 (Version None)
Quarter: 2011Q3

REPORT INFORMATION
  Report Type: 
  Country: None (occurrence: None)
  Receive Date: 20110831
  Receipt Date: 20110824
  Transmission Date: 20111222
  Serious: Yes (Hospitalization)
  Sender: FDA-Public Use
  Company Number: US-BAYER-2011-022149

PATIENT
  Age: 34 Year
  Sex: Female
  Weight: 65.76 kg

DRUGS (2)
  1. SYNTHROID [Concomitant]
     Dosage: UNK
     Dates: start: 20101101
  2. YASMIN [Suspect]
     Indication: PRODUCT USED FOR UNKNOWN INDICATION
     Dosage: UNK
     Dates: start: 20021022, end: 20040826

REACTIONS (3)
  - INJURY [None]
  - PULMONARY EMBOLISM [None]
  - CHEST PAIN [None]
